FAERS Safety Report 5614298-5 (Version None)
Quarter: 2008Q1

REPORT INFORMATION
  Report Type: 
  Country: None (occurrence: None)
  Receive Date: 20080130
  Receipt Date: 20080115
  Transmission Date: 20080703
  Serious: Yes (Death)
  Sender: FDA-Public Use
  Company Number: 310012M07FRA

PATIENT
  Sex: Female
  Weight: 50 kg

DRUGS (5)
  1. GONAL-F [Suspect]
     Indication: OVARIAN FAILURE
     Dosage: 150 IU, 1 IN 1 DAYS, SUBCUTANEOUS
     Route: 058
     Dates: start: 20071025, end: 20071103
  2. OVITRELLE (CHORIOGONADROTOPIN ALFA) [Suspect]
     Indication: DRUG THERAPY
     Dosage: 250 MCG, ONCE, SUBCUTANEOUS; 125 MCG, ONCE, SUBCUTANEOUS
     Route: 058
     Dates: start: 20071104, end: 20071104
  3. OVITRELLE (CHORIOGONADROTOPIN ALFA) [Suspect]
     Indication: DRUG THERAPY
     Dosage: 250 MCG, ONCE, SUBCUTANEOUS; 125 MCG, ONCE, SUBCUTANEOUS
     Route: 058
     Dates: start: 20071109, end: 20071109
  4. GONADORELIN /00486501/ [Concomitant]
  5. MENOPUR [Suspect]
     Indication: OVARIAN FAILURE
     Dosage: 75 IU, 1 IN 1 DAYS, SUBCUTANEOUS
     Route: 058
     Dates: start: 20071031, end: 20071103

REACTIONS (3)
  - CAROTID ARTERY THROMBOSIS [None]
  - CEREBROVASCULAR ACCIDENT [None]
  - FAMILIAL RISK FACTOR [None]
